FAERS Safety Report 12272356 (Version 4)
Quarter: 2016Q3

REPORT INFORMATION
  Report Type: Spontaneous
  Country: KR (occurrence: KR)
  Receive Date: 20160415
  Receipt Date: 20160701
  Transmission Date: 20161109
  Serious: Yes (Death, Other)
  Sender: FDA-Public Use
  Company Number: KR-BAYER-2016-070881

PATIENT
  Age: 35 Year
  Sex: Female
  Weight: 50 kg

DRUGS (10)
  1. ACETYLCYSTEIN [Suspect]
     Active Substance: ACETYLCYSTEINE
     Indication: DEEP VEIN THROMBOSIS
  2. PARACETAMOL [Suspect]
     Active Substance: ACETAMINOPHEN
     Dosage: UNK
     Dates: start: 20160309, end: 20160311
  3. YASMIN [Suspect]
     Active Substance: DROSPIRENONE\ETHINYL ESTRADIOL
     Indication: MENORRHAGIA
     Dosage: UNK
     Route: 048
     Dates: start: 20151104, end: 20160314
  4. YASMIN [Suspect]
     Active Substance: DROSPIRENONE\ETHINYL ESTRADIOL
     Indication: DYSMENORRHOEA
  5. ACETYLCYSTEIN [Suspect]
     Active Substance: ACETYLCYSTEINE
     Indication: BRONCHITIS
     Dosage: UNK
     Dates: start: 20160309, end: 20160311
  6. LEVOCLOPERASTINE FENDIZOATE [Suspect]
     Active Substance: LEVOCLOPERASTINE FENDIZOATE
     Dosage: UNK
     Dates: start: 20160309, end: 20160311
  7. ERYTROMYCIN [Suspect]
     Active Substance: ERYTHROMYCIN
     Dosage: UNK
     Dates: start: 20160309, end: 20160311
  8. PSEUDOEPHEDRINE HYDROCHLORIDE. [Suspect]
     Active Substance: PSEUDOEPHEDRINE HYDROCHLORIDE
     Dosage: UNK
     Dates: start: 20160309, end: 20160311
  9. BEROTEC [Suspect]
     Active Substance: FENOTEROL HYDROBROMIDE
     Dosage: UNK
     Dates: start: 20160309, end: 20160311
  10. PHENIRAMINE [Suspect]
     Active Substance: PHENIRAMINE
     Dosage: UNK
     Dates: start: 20160309, end: 20160311

REACTIONS (11)
  - Septic shock [Fatal]
  - Multiple organ dysfunction syndrome [Fatal]
  - Pulmonary embolism [Fatal]
  - Embolism venous [Fatal]
  - Peripheral swelling [None]
  - Off label use [None]
  - Renal failure [Fatal]
  - Dyspnoea [Fatal]
  - Pain in extremity [None]
  - Deep vein thrombosis [None]
  - Back pain [None]

NARRATIVE: CASE EVENT DATE: 20160107
